FAERS Safety Report 6978558-8 (Version None)
Quarter: 2010Q3

REPORT INFORMATION
  Report Type: 
  Country: None (occurrence: None)
  Receive Date: 20100913
  Receipt Date: 20100902
  Transmission Date: 20110219
  Serious: Yes (Death, Hospitalization)
  Sender: FDA-Public Use
  Company Number: US-SANOFI-AVENTIS-A03200607586

PATIENT
  Age: 74 Year
  Sex: Male

DRUGS (17)
  1. CLOPIDOGREL BISULFATE [Suspect]
     Dosage: UNIT DOSE: 75 MG
     Route: 048
     Dates: start: 20021101
  2. CLOPIDOGREL BISULFATE [Suspect]
     Indication: STENT PLACEMENT
     Dosage: UNIT DOSE: 75 MG
     Route: 048
     Dates: start: 20021101
  3. CLOPIDOGREL BISULFATE [Suspect]
     Route: 048
     Dates: start: 20030701
  4. CLOPIDOGREL BISULFATE [Suspect]
     Route: 048
     Dates: start: 20030701
  5. ASPIRIN [Suspect]
     Route: 048
     Dates: start: 20021101
  6. ASPIRIN [Suspect]
     Indication: STENT PLACEMENT
     Route: 048
     Dates: start: 20021101
  7. LANOXIN [Concomitant]
  8. TOPROL-XL [Concomitant]
  9. ZOCOR [Concomitant]
  10. TERAZOSIN HCL [Concomitant]
  11. COZAAR [Concomitant]
  12. NORVASC [Concomitant]
  13. PREVACID [Concomitant]
  14. LASIX [Concomitant]
  15. CELEBREX [Concomitant]
  16. PROCARDIA [Concomitant]
  17. VITAMINS [Concomitant]

REACTIONS (9)
  - BILIARY COLIC [None]
  - BRAIN HERNIATION [None]
  - BRAIN INJURY [None]
  - BRAIN STEM SYNDROME [None]
  - CHOLECYSTITIS [None]
  - COMA [None]
  - POSTURING [None]
  - RESPIRATORY FAILURE [None]
  - SUBDURAL HAEMATOMA [None]
